FAERS Safety Report 14225783 (Version 1)
Quarter: 2017Q4

REPORT INFORMATION
  Report Type: Spontaneous
  Country: US (occurrence: None)
  Receive Date: 20171126
  Receipt Date: 20171126
  Transmission Date: 20180321
  Serious: Yes (Life-Threatening)
  Sender: FDA-Public Use
  Company Number: None

PATIENT
  Age: 42 Year
  Sex: Female
  Weight: 54.43 kg

DRUGS (4)
  1. BIRTH CONTROL [Concomitant]
     Active Substance: UNSPECIFIED INGREDIENT
  2. VITAMINS [Concomitant]
     Active Substance: VITAMINS
  3. EPIPEN [Suspect]
     Active Substance: EPINEPHRINE
  4. ALLERGY MEDS [Concomitant]

REACTIONS (2)
  - Device failure [None]
  - Device malfunction [None]

NARRATIVE: CASE EVENT DATE: 20170729
